FAERS Safety Report 6199376-7 (Version None)
Quarter: 2009Q2

REPORT INFORMATION
  Report Type: 
  Country: None (occurrence: None)
  Receive Date: 20090522
  Receipt Date: 20090511
  Transmission Date: 20091009
  Serious: Yes (Hospitalization, Other)
  Sender: FDA-Public Use
  Company Number: ES-ELI_LILLY_AND_COMPANY-ES200905002336

PATIENT
  Age: 77 Year
  Sex: Female

DRUGS (4)
  1. FORTEO [Suspect]
     Indication: OSTEOPOROSIS
     Dosage: 20 UG, UNK
     Route: 058
     Dates: start: 20080901
  2. PROZAC [Concomitant]
  3. CARDIL                             /00489702/ [Concomitant]
  4. CHOLESTEROL- AND TRIGLYCERIDE REDUCERS [Concomitant]
     Indication: BLOOD CHOLESTEROL

REACTIONS (5)
  - BRONCHITIS [None]
  - CARDIAC DISORDER [None]
  - FATIGUE [None]
  - PULMONARY HYPERTENSION [None]
  - PULMONARY THROMBOSIS [None]
